FAERS Safety Report 9528017 (Version 1)
Quarter: 2013Q1

REPORT INFORMATION
  Report Type: Spontaneous
  Country: US (occurrence: None)
  Receive Date: 20130314
  Receipt Date: 20130314
  Transmission Date: 20140127
  Serious: Yes (Other)
  Sender: FDA-Public Use
  Company Number: 1301USA009819

PATIENT
  Sex: Male

DRUGS (5)
  1. VICTRELIS [Suspect]
     Route: 048
  2. PEGASYS [Suspect]
     Dosage: 180 MCG/M
  3. RIBASPHERE [Suspect]
  4. PRILOSEC (OMEPRAZOLE), 20 MG [Concomitant]
  5. NEUPOGEN (FILGRASTIM), 300 MICROGRAM [Concomitant]

REACTIONS (9)
  - White blood cell count decreased [None]
  - Weight increased [None]
  - Palpitations [None]
  - Fatigue [None]
  - Syncope [None]
  - Alopecia [None]
  - Rash [None]
  - Influenza like illness [None]
  - Dyspnoea [None]
